FAERS Safety Report 13119669 (Version 2)
Quarter: 2017Q1

REPORT INFORMATION
  Report Type: Spontaneous
  Country: US (occurrence: US)
  Receive Date: 20170117
  Receipt Date: 20170119
  Transmission Date: 20170428
  Serious: Yes (Hospitalization, Other)
  Sender: FDA-Public Use
  Company Number: US-ABBVIE-17K-163-1835784-00

PATIENT
  Sex: Female

DRUGS (1)
  1. HUMIRA [Suspect]
     Active Substance: ADALIMUMAB
     Indication: PRODUCT USED FOR UNKNOWN INDICATION
     Route: 058

REACTIONS (11)
  - Gastrointestinal perforation [Unknown]
  - Post procedural complication [Unknown]
  - Sciatica [Unknown]
  - Gastrointestinal infection [Unknown]
  - Bacterial pyelonephritis [Unknown]
  - Gait disturbance [Unknown]
  - Ureteric obstruction [Unknown]
  - Asthenia [Unknown]
  - Colonic abscess [Unknown]
  - Purulence [Unknown]
  - Abdominal pain [Unknown]
